FAERS Safety Report 8698619 (Version 2)
Quarter: 2012Q4

REPORT INFORMATION
  Report Type: 
  Country: US (occurrence: US)
  Receive Date: 20120802
  Receipt Date: 20120829
  Transmission Date: 20130627
  Serious: No
  Sender: FDA-Public Use
  Company Number: US-PFIZER INC-2012184651

PATIENT
  Age: 72 Year
  Sex: Female
  Weight: 64 kg

DRUGS (5)
  1. SUTENT [Suspect]
     Indication: RENAL CANCER STAGE IV
     Dosage: 50 mg, First 42 day cycle
     Dates: start: 20120725
  2. OXYCODONE [Concomitant]
     Indication: BREAKTHROUGH PAIN
     Dosage: 10 mg, as needed
  3. OXYCONTIN [Concomitant]
     Dosage: 40 mg, every eight hours
  4. PANTOPRAZOLE [Concomitant]
     Dosage: 40 mg, as needed
  5. AMLODIPINE [Concomitant]
     Dosage: as needed

REACTIONS (5)
  - Tongue disorder [Unknown]
  - Oral mucosal blistering [Not Recovered/Not Resolved]
  - Tongue blistering [Not Recovered/Not Resolved]
  - Stomatitis [Unknown]
  - Diarrhoea [Not Recovered/Not Resolved]
